FAERS Safety Report 9815514 (Version 2)
Quarter: 2014Q1

REPORT INFORMATION
  Report Type: Report from Study
  Country: CA (occurrence: CA)
  Receive Date: 20140114
  Receipt Date: 20140120
  Transmission Date: 20141002
  Serious: Yes (Hospitalization)
  Sender: FDA-Public Use
  Company Number: CA-JNJFOC-20140103725

PATIENT
  Age: 52 Year
  Sex: Male
  Weight: 77.11 kg

DRUGS (1)
  1. SIMPONI [Suspect]
     Indication: CROHN^S DISEASE
     Route: 058
     Dates: end: 20140107

REACTIONS (10)
  - Abdominal pain [Unknown]
  - Red blood cell sedimentation rate increased [Unknown]
  - White blood cell count increased [Unknown]
  - Sinusitis [Unknown]
  - Contusion [Unknown]
  - Pain [Unknown]
  - Paraesthesia [Unknown]
  - Muscle spasms [Unknown]
  - Headache [Unknown]
  - Off label use [Unknown]
